FAERS Safety Report 18486983 (Version 2)
Quarter: 2020Q4

REPORT INFORMATION
  Report Type: Spontaneous
  Country: US (occurrence: US)
  Receive Date: 20201110
  Receipt Date: 20201113
  Transmission Date: 20210114
  Serious: No
  Sender: FDA-Public Use
  Company Number: US-BIOGEN-2020BI00944485

PATIENT
  Age: 46 Year
  Sex: Female

DRUGS (2)
  1. TECFIDERA [Suspect]
     Active Substance: DIMETHYL FUMARATE
     Indication: MULTIPLE SCLEROSIS
     Route: 065
     Dates: start: 20190516
  2. TECFIDERA [Suspect]
     Active Substance: DIMETHYL FUMARATE
     Route: 065
     Dates: start: 20190606, end: 20201015

REACTIONS (9)
  - Multiple sclerosis [Unknown]
  - Hyperhidrosis [Unknown]
  - Dizziness [Unknown]
  - Fall [Recovered/Resolved]
  - Temperature intolerance [Unknown]
  - Multiple sclerosis relapse [Unknown]
  - Blood glucose increased [Unknown]
  - Flushing [Unknown]
  - Insomnia [Unknown]

NARRATIVE: CASE EVENT DATE: 202006
